FAERS Safety Report 4756809-8 (Version None)
Quarter: 2005Q3

REPORT INFORMATION
  Report Type: 
  Country: None (occurrence: None)
  Receive Date: 20050830
  Receipt Date: 20050805
  Transmission Date: 20060218
  Serious: Yes (Death, Other)
  Sender: FDA-Public Use
  Company Number: PHBS2005NZ12476

PATIENT
  Sex: Male

DRUGS (1)
  1. SANDOSTATIN LAR [Suspect]
     Indication: ACROMEGALY

REACTIONS (3)
  - HYPERADRENOCORTICISM [None]
  - MYOCARDIAL INFARCTION [None]
  - PARATHYROID GLAND ENLARGEMENT [None]
